FAERS Safety Report 9036932 (Version 1)
Quarter: 2013Q1

REPORT INFORMATION
  Report Type: Spontaneous
  Country: US (occurrence: None)
  Receive Date: 20130123
  Receipt Date: 20130123
  Transmission Date: 20140127
  Serious: Yes (Life-Threatening, Hospitalization, Disabling, Other)
  Sender: FDA-Public Use
  Company Number: None

PATIENT
  Age: 14 Year
  Sex: Male
  Weight: 34 kg

DRUGS (1)
  1. RISPERIDONE [Suspect]
     Route: 050
     Dates: start: 20070101, end: 20120914

REACTIONS (5)
  - Urinary retention [None]
  - Bladder injury [None]
  - Renal injury [None]
  - Hypertension [None]
  - Pancreatitis [None]
